FAERS Safety Report 19271259 (Version 1)
Quarter: 2021Q2

REPORT INFORMATION
  Report Type: Report from Study
  Country: US (occurrence: US)
  Receive Date: 20210518
  Receipt Date: 20210518
  Transmission Date: 20210717
  Serious: Yes (Death)
  Sender: FDA-Public Use
  Company Number: US-PFIZER INC-2021534463

PATIENT
  Age: 70 Year

DRUGS (5)
  1. DECITABINE. [Suspect]
     Active Substance: DECITABINE
     Dosage: 20 MG/M2/DAY FOR 10 DAYS EITHER BEFORE (DAYS ?14 THROUGH ?5) OR WITH (DAYS +1 THROUGH +10)
  2. CLADRIBINE. [Suspect]
     Active Substance: CLADRIBINE
     Dosage: UNK, CYCLIC
  3. MITOXANTRONE HCL [Suspect]
     Active Substance: MITOXANTRONE HYDROCHLORIDE
     Dosage: 18 MG/M2/DOSE ON DAYS +1 TO +5
  4. G?CSF [Suspect]
     Active Substance: GRANULOCYTE COLONY-STIMULATING FACTOR NOS
     Dosage: UNK, CYCLIC (STARTED ON DAY 0)
  5. CYTARABINE. [Suspect]
     Active Substance: CYTARABINE
     Dosage: UNK, CYCLIC

REACTIONS (1)
  - Infection [Fatal]
